FAERS Safety Report 8071161-0 (Version None)
Quarter: 2012Q1

REPORT INFORMATION
  Report Type: 
  Country: None (occurrence: None)
  Receive Date: 20120125
  Receipt Date: 20120116
  Transmission Date: 20120608
  Serious: Yes (Other)
  Sender: FDA-Public Use
  Company Number: PHHY2012US004898

PATIENT

DRUGS (1)
  1. OCTREOTIDE ACETATE [Suspect]
     Dosage: UNK UKN, UNK

REACTIONS (1)
  - LIVER INJURY [None]
